FAERS Safety Report 6626710-3 (Version None)
Quarter: 2010Q1

REPORT INFORMATION
  Report Type: 
  Country: None (occurrence: None)
  Receive Date: 20100308
  Receipt Date: 20100223
  Transmission Date: 20100710
  Serious: Yes (Other)
  Sender: FDA-Public Use
  Company Number: 2010JP001130

PATIENT
  Age: 89 Year
  Sex: Male

DRUGS (5)
  1. VESICARE [Suspect]
     Dosage: 2.5 MG, ORAL
     Route: 048
  2. ADALAT L (NIFEDIPINE) PER ORAL NOS [Concomitant]
  3. ALDACTONE (SPIRONOLACTONE) PER ORAL NOS [Concomitant]
  4. FLIVAS (NAFTOPIDIL) PER ORAL NOS [Concomitant]
  5. PLAVIX (CLOPIDOGREL SULFATE) PER ORAL NOS [Concomitant]

REACTIONS (1)
  - ILEUS [None]
